FAERS Safety Report 4474580-4 (Version None)
Quarter: 2004Q4

REPORT INFORMATION
  Report Type: 
  Country: None (occurrence: None)
  Receive Date: 20041012
  Receipt Date: 20041005
  Transmission Date: 20050328
  Serious: Yes (Death)
  Sender: FDA-Public Use
  Company Number: 2004-120922-NL

PATIENT
  Age: 71 Year
  Sex: Female

DRUGS (3)
  1. MIRTAZAPINE [Suspect]
     Dosage: DF
  2. PARACETAMOL [Suspect]
  3. CODEINE [Suspect]

REACTIONS (2)
  - COMPLETED SUICIDE [None]
  - TOXICOLOGIC TEST ABNORMAL [None]
